FAERS Safety Report 8090752-4 (Version None)
Quarter: 2012Q1

REPORT INFORMATION
  Report Type: 
  Country: None (occurrence: None)
  Receive Date: 20120125
  Receipt Date: 20120116
  Transmission Date: 20120608
  Serious: Yes (Other)
  Sender: FDA-Public Use
  Company Number: IMP_05713_2012

PATIENT
  Age: 50 Year
  Sex: Male

DRUGS (1)
  1. CABERGOLINE [Suspect]
     Indication: PROLACTINOMA
     Dosage: (0.5 MG 2X/WEEK)

REACTIONS (6)
  - ECONOMIC PROBLEM [None]
  - LIBIDO INCREASED [None]
  - HYPERSEXUALITY [None]
  - ABNORMAL BEHAVIOUR [None]
  - PATHOLOGICAL GAMBLING [None]
  - BLOOD TESTOSTERONE DECREASED [None]
